FAERS Safety Report 23977994 (Version 1)
Quarter: 2024Q2

REPORT INFORMATION
  Report Type: Spontaneous
  Country: DE (occurrence: DE)
  Receive Date: 20240614
  Receipt Date: 20240614
  Transmission Date: 20240716
  Serious: Yes (Life-Threatening, Disabling)
  Sender: FDA-Public Use
  Company Number: DE-DCGMA-24203373

PATIENT
  Sex: Female
  Weight: 2.7 kg

DRUGS (2)
  1. CANDESARTAN [Suspect]
     Active Substance: CANDESARTAN
     Indication: Product used for unknown indication
     Dosage: 8 MILLIGRAM, QD
     Route: 064
  2. METHYLDOPA [Concomitant]
     Active Substance: METHYLDOPA
     Dosage: UNK
     Route: 064

REACTIONS (10)
  - Anuria [Unknown]
  - Muscle contracture [Unknown]
  - Pulmonary hypoplasia [Unknown]
  - Premature baby [Unknown]
  - Isosthenuria [Unknown]
  - Oligohydramnios [Unknown]
  - Pulmonary hypertension [Unknown]
  - Renal injury [Unknown]
  - Foetal exposure during pregnancy [Unknown]
  - Contraindicated product prescribed [Unknown]

NARRATIVE: CASE EVENT DATE: 20240506
